FAERS Safety Report 8214522-9 (Version None)
Quarter: 2012Q1

REPORT INFORMATION
  Report Type: 
  Country: None (occurrence: None)
  Receive Date: 20120316
  Receipt Date: 20120316
  Transmission Date: 20120608
  Serious: Yes (Hospitalization, Other)
  Sender: FDA-Public Use
  Company Number: None

PATIENT
  Age: 59 Year
  Sex: Female
  Weight: 792.87 kg

DRUGS (1)
  1. AZACITIDINE [Suspect]
     Indication: MYELODYSPLASTIC SYNDROME
     Dosage: 67MG
     Route: 058
     Dates: start: 20120228, end: 20120307

REACTIONS (1)
  - CEREBRAL HAEMORRHAGE [None]
